FAERS Safety Report 6160840-8 (Version None)
Quarter: 2009Q2

REPORT INFORMATION
  Report Type: 
  Country: None (occurrence: None)
  Receive Date: 20090420
  Receipt Date: 20090410
  Transmission Date: 20091009
  Serious: Yes (Life-Threatening, Hospitalization)
  Sender: FDA-Public Use
  Company Number: BE-ROCHE-626583

PATIENT
  Age: 46 Year
  Sex: Male
  Weight: 100 kg

DRUGS (2)
  1. PEGASYS [Suspect]
     Indication: HEPATITIS C
     Route: 058
     Dates: start: 20090313, end: 20090403
  2. COPEGUS [Suspect]
     Indication: HEPATITIS C
     Dosage: DAILY
     Route: 048
     Dates: start: 20080313, end: 20090403

REACTIONS (6)
  - ATRIAL FIBRILLATION [None]
  - CARDIAC ARREST [None]
  - CARDIOMYOPATHY [None]
  - COMA [None]
  - LUNG INFILTRATION [None]
  - MYALGIA [None]
